FAERS Safety Report 11460030 (Version 2)
Quarter: 2015Q3

REPORT INFORMATION
  Report Type: Report from Study
  Country: US (occurrence: None)
  Receive Date: 20150904
  Receipt Date: 20150916
  Transmission Date: 20151125
  Serious: Yes (Other)
  Sender: FDA-Public Use
  Company Number: ADR-2009-7020

PATIENT
  Age: 11 Year
  Sex: Male

DRUGS (1)
  1. BACLOFEN INTRATHECAL 500MCG/ML [Suspect]
     Active Substance: BACLOFEN
     Indication: MUSCLE SPASTICITY
     Dosage: 50MCG/DAY

REACTIONS (13)
  - Medical device site erythema [None]
  - Implant site dehiscence [None]
  - Pyrexia [None]
  - Medical device site discharge [None]
  - Meningeal disorder [None]
  - Staphylococcus test positive [None]
  - Medical device site infection [None]
  - Meningitis [None]
  - Cerebrospinal fluid leakage [None]
  - Fluctuance [None]
  - Crying [None]
  - Medical device site swelling [None]
  - Implant site extravasation [None]
